FAERS Safety Report 8501039-7 (Version None)
Quarter: 2012Q3

REPORT INFORMATION
  Report Type: 
  Country: None (occurrence: None)
  Receive Date: 20120710
  Receipt Date: 20120702
  Transmission Date: 20120928
  Serious: Yes (Hospitalization, Other)
  Sender: FDA-Public Use
  Company Number: JP-VERTEX PHARMACEUTICALS INC.-AE-2012-004786

PATIENT
  Age: 51 Year
  Sex: Male

DRUGS (9)
  1. TELAVIC (TELAPREVIR) [Suspect]
     Route: 048
     Dates: start: 20120229, end: 20120305
  2. MUCOSTA [Concomitant]
     Route: 048
     Dates: start: 20120217
  3. TELAVIC (TELAPREVIR) [Suspect]
     Indication: HEPATITIS C
     Route: 048
     Dates: start: 20120202, end: 20120228
  4. PEG-INTRON [Concomitant]
     Indication: HEPATITIS C
     Route: 058
     Dates: start: 20120202, end: 20120224
  5. REBETOL [Concomitant]
     Indication: HEPATITIS C
     Route: 048
     Dates: start: 20120202, end: 20120228
  6. URSO 250 [Concomitant]
     Route: 048
     Dates: start: 20120315
  7. REBETOL [Concomitant]
     Route: 048
     Dates: start: 20120229, end: 20120305
  8. FAMOTIDINE [Concomitant]
     Route: 048
  9. MARZULENE-S [Concomitant]
     Route: 048

REACTIONS (7)
  - DYSGEUSIA [None]
  - MALAISE [None]
  - WHITE BLOOD CELL COUNT DECREASED [None]
  - PANCYTOPENIA [None]
  - HAEMOGLOBIN DECREASED [None]
  - DECREASED APPETITE [None]
  - EPISTAXIS [None]
